FAERS Safety Report 8952655 (Version 1)
Quarter: 2012Q4

REPORT INFORMATION
  Report Type: Report from Study
  Country: BR (occurrence: BR)
  Receive Date: 20121205
  Receipt Date: 20121205
  Transmission Date: 20130627
  Serious: Yes (Hospitalization)
  Sender: FDA-Public Use
  Company Number: BR-US-EMD SERONO, INC.-7178560

PATIENT
  Age: 59 Year
  Sex: Female

DRUGS (4)
  1. REBIF [Suspect]
     Indication: SECONDARY PROGRESSIVE MULTIPLE SCLEROSIS
     Dates: start: 20091221
  2. CARBAMAZEPINE [Concomitant]
     Indication: PRODUCT USED FOR UNKNOWN INDICATION
  3. ETNA [Concomitant]
     Indication: PRODUCT USED FOR UNKNOWN INDICATION
  4. DIPYRONE [Concomitant]
     Indication: PRODUCT USED FOR UNKNOWN INDICATION

REACTIONS (5)
  - Hypoaesthesia [Recovering/Resolving]
  - Fall [Unknown]
  - Facial bones fracture [Unknown]
  - Musculoskeletal stiffness [Recovering/Resolving]
  - Ear discomfort [Recovering/Resolving]
